FAERS Safety Report 13786224 (Version 1)
Quarter: 2017Q3

REPORT INFORMATION
  Report Type: Spontaneous
  Country: US (occurrence: US)
  Receive Date: 20170725
  Receipt Date: 20170725
  Transmission Date: 20171127
  Serious: No
  Sender: FDA-Public Use
  Company Number: None

PATIENT
  Age: 75 Year
  Sex: Male
  Weight: 82.64 kg

DRUGS (1)
  1. GLOBULIN, IMMUNE [Suspect]
     Active Substance: HUMAN IMMUNOGLOBULIN G
     Indication: B-CELL LYMPHOMA
     Route: 042
     Dates: start: 20170717, end: 20170717

REACTIONS (8)
  - Discomfort [None]
  - Back pain [None]
  - Blood pressure increased [None]
  - Muscle tightness [None]
  - Oxygen saturation decreased [None]
  - Chills [None]
  - Infusion related reaction [None]
  - Hyperaesthesia [None]

NARRATIVE: CASE EVENT DATE: 20170717
